FAERS Safety Report 10599333 (Version 1)
Quarter: 2014Q4

REPORT INFORMATION
  Report Type: Spontaneous
  Country: FR (occurrence: None)
  Receive Date: 20141119
  Receipt Date: 20141119
  Transmission Date: 20150529
  Serious: Yes (Hospitalization)
  Sender: FDA-Public Use
  Company Number: FK201405226

PATIENT
  Age: 70 Year
  Sex: Male

DRUGS (4)
  1. LOMUSTINE (LOMUSTINE) (LOMUSTINE) [Suspect]
     Active Substance: LOMUSTINE
     Indication: ACUTE MYELOID LEUKAEMIA
  2. DAUNORUBICIN (DAUNORUBICIN) (DAUNORUBICIN) [Suspect]
     Active Substance: DAUNORUBICIN
     Indication: ACUTE MYELOID LEUKAEMIA
  3. CYTARABINE (MANUFACTURER UNKNOWN) (CYTARABINE) (CYTARABINE) [Suspect]
     Active Substance: CYTARABINE
     Indication: ACUTE MYELOID LEUKAEMIA
  4. IDARUBICIN (IDARUBICIN) (IDARUBICIN) [Suspect]
     Active Substance: IDARUBICIN
     Indication: ACUTE MYELOID LEUKAEMIA

REACTIONS (6)
  - Neutropenia [None]
  - Gastrointestinal inflammation [None]
  - Dialysis [None]
  - Blood culture positive [None]
  - Geotrichum infection [None]
  - Pleural effusion [None]
